FAERS Safety Report 7039483-X (Version None)
Quarter: 2010Q4

REPORT INFORMATION
  Report Type: 
  Country: None (occurrence: None)
  Receive Date: 20101012
  Receipt Date: 20090403
  Transmission Date: 20110411
  Serious: Yes (Death)
  Sender: FDA-Public Use
  Company Number: GB-ROCHE-731872

PATIENT

DRUGS (5)
  1. XELODA [Suspect]
     Indication: COLORECTAL CANCER
     Route: 065
     Dates: start: 20081225
  2. XELODA [Suspect]
     Route: 065
  3. FOLINIC ACID [Concomitant]
     Indication: COLORECTAL CANCER
     Dosage: RECEIVED AS PART OF FOLFIRI
  4. FLUOROURACIL [Concomitant]
     Indication: COLORECTAL CANCER
     Dosage: RECEIVED AS PART OF FOLFIRI
  5. IRINOTECAN [Concomitant]
     Indication: COLORECTAL CANCER
     Dosage: RECEIVED AS PART OF FOLFIRI

REACTIONS (1)
  - DEATH [None]
